FAERS Safety Report 7555957-7 (Version None)
Quarter: 2011Q2

REPORT INFORMATION
  Report Type: 
  Country: None (occurrence: None)
  Receive Date: 20110619
  Receipt Date: 20100616
  Transmission Date: 20111010
  Serious: No
  Sender: FDA-Public Use
  Company Number: US-ALLERGAN-1007999US

PATIENT
  Age: 66 Year
  Sex: Female

DRUGS (1)
  1. SANCTURA [Suspect]
     Indication: PRODUCT USED FOR UNKNOWN INDICATION

REACTIONS (2)
  - DRY MOUTH [None]
  - CONSTIPATION [None]
